FAERS Safety Report 9859203 (Version 2)
Quarter: 2014Q1

REPORT INFORMATION
  Report Type: Report from Study
  Country: CA (occurrence: CA)
  Receive Date: 20140131
  Receipt Date: 20140131
  Transmission Date: 20141002
  Serious: Yes (Hospitalization)
  Sender: FDA-Public Use
  Company Number: CA-BRISTOL-MYERS SQUIBB COMPANY-19364546

PATIENT
  Age: 70 Year
  Sex: Female

DRUGS (11)
  1. ORENCIA [Suspect]
     Indication: RHEUMATOID ARTHRITIS
     Dosage: 1DF=750UNITS NOS,3J75953,JUL16
     Dates: start: 20130417
  2. METHOTREXATE [Concomitant]
  3. FOLIC ACID [Concomitant]
  4. SULFASALAZINE [Concomitant]
  5. PLAQUENIL [Concomitant]
  6. MOTILIUM [Concomitant]
  7. CALCIUM [Concomitant]
  8. CRESTOR [Concomitant]
  9. LOPRESSOR [Concomitant]
  10. LANSOPRAZOLE [Concomitant]
  11. CANDESARTAN [Concomitant]

REACTIONS (2)
  - Epistaxis [Recovered/Resolved]
  - Heart rate increased [Unknown]
